FAERS Safety Report 12110127 (Version 2)
Quarter: 2016Q3

REPORT INFORMATION
  Report Type: Report from Study
  Country: US (occurrence: US)
  Receive Date: 20160224
  Receipt Date: 20160907
  Transmission Date: 20161109
  Serious: Yes (Death)
  Sender: FDA-Public Use
  Company Number: US-MALLINCKRODT-T201600521

PATIENT
  Age: 38 Year
  Sex: Male

DRUGS (1)
  1. REPOSITORY CORTICOTROPIN INJECTION [Suspect]
     Active Substance: CORTICOTROPIN
     Indication: NEPHROTIC SYNDROME
     Dosage: 20 UNITS TWICE WKLY X3-WKS, 40 UNITS X4-WKS, 80 UNITS TWICE WKLY TO COMPLETE 4-MONTHS OF RX
     Route: 058
     Dates: start: 201510, end: 20151201

REACTIONS (2)
  - Hypoglycaemia [Fatal]
  - Sepsis [Fatal]

NARRATIVE: CASE EVENT DATE: 201512
